FAERS Safety Report 14330262 (Version 9)
Quarter: 2019Q1

REPORT INFORMATION
  Report Type: Report from Study
  Country: None (occurrence: BR)
  Receive Date: 20171227
  Receipt Date: 20190322
  Transmission Date: 20190417
  Serious: Yes (Death, Life-Threatening, Hospitalization, Other)
  Sender: FDA-Public Use
  Company Number: BR-ABBVIE-17P-020-2205233-00

PATIENT
  Sex: Male
  Weight: 47.8 kg

DRUGS (1)
  1. VENETOCLAX. [Suspect]
     Active Substance: VENETOCLAX
     Indication: PLASMA CELL MYELOMA
     Route: 048
     Dates: start: 20171003, end: 20190109

REACTIONS (10)
  - Vomiting [Unknown]
  - Gastrointestinal toxicity [Unknown]
  - Plasma cell myeloma [Fatal]
  - Hospitalisation [Unknown]
  - Pleural effusion [Unknown]
  - Diarrhoea [Unknown]
  - Atrial enlargement [Unknown]
  - Pericardial effusion [Unknown]
  - Myocarditis [Recovering/Resolving]
  - Hepatitis [Recovering/Resolving]

NARRATIVE: CASE EVENT DATE: 20180211
